FAERS Safety Report 5278400-X (Version None)
Quarter: 2007Q1

REPORT INFORMATION
  Report Type: 
  Country: None (occurrence: None)
  Receive Date: 20061213
  Receipt Date: 20030930
  Transmission Date: 20070707
  Serious: No
  Sender: FDA-Public Use
  Company Number: 2003UW04109

PATIENT
  Age: 46 Year
  Sex: Female

DRUGS (4)
  1. SEROQUEL [Suspect]
     Dosage: 300 MG BID PO
     Route: 048
     Dates: start: 20001018
  2. BUSPAR [Concomitant]
  3. WELLBUTRIN [Concomitant]
  4. SONATA [Concomitant]

REACTIONS (1)
  - CATARACT [None]
